FAERS Safety Report 8121699-2 (Version None)
Quarter: 2012Q1

REPORT INFORMATION
  Report Type: 
  Country: None (occurrence: None)
  Receive Date: 20120208
  Receipt Date: 20120130
  Transmission Date: 20120608
  Serious: Yes (Other)
  Sender: FDA-Public Use
  Company Number: JP-SANOFI-AVENTIS-2012SA007575

PATIENT
  Age: 35 Year
  Sex: Male

DRUGS (9)
  1. HIRNAMIN [Concomitant]
     Dates: start: 20100101
  2. LEXOTAN [Concomitant]
     Dates: start: 20091001
  3. DESYREL [Concomitant]
     Dates: start: 20091001
  4. AMOBAN [Concomitant]
  5. DEPAS [Concomitant]
     Route: 048
     Dates: start: 20091001
  6. ROHYPNOL [Concomitant]
     Route: 048
     Dates: start: 20091001
  7. ZOLPIDEM [Suspect]
     Route: 048
     Dates: start: 20091001
  8. DORAL [Suspect]
     Route: 048
     Dates: start: 20100101
  9. DOGMATYL [Concomitant]
     Dates: start: 20100101

REACTIONS (2)
  - CONDITION AGGRAVATED [None]
  - DRUG RASH WITH EOSINOPHILIA AND SYSTEMIC SYMPTOMS [None]
